FAERS Safety Report 5483943-X (Version None)
Quarter: 2007Q4

REPORT INFORMATION
  Report Type: 
  Country: None (occurrence: None)
  Receive Date: 20071012
  Receipt Date: 20070925
  Transmission Date: 20080405
  Serious: Yes (Hospitalization)
  Sender: FDA-Public Use
  Company Number: SG-MERCK-0709SGP00007

PATIENT
  Age: 60 Year
  Sex: Male

DRUGS (1)
  1. FOSAMAX [Suspect]
     Route: 065
     Dates: start: 20060101, end: 20060101

REACTIONS (1)
  - FEMUR FRACTURE [None]
